FAERS Safety Report 6065137-2 (Version None)
Quarter: 2009Q1

REPORT INFORMATION
  Report Type: 
  Country: None (occurrence: None)
  Receive Date: 20090204
  Receipt Date: 20090128
  Transmission Date: 20090719
  Serious: Yes (Hospitalization)
  Sender: FDA-Public Use
  Company Number: GB-AMGEN-UK261588

PATIENT
  Sex: Female

DRUGS (17)
  1. PANITUMUMAB [Suspect]
     Indication: COLORECTAL CANCER
     Route: 041
     Dates: start: 20071203, end: 20080121
  2. IRINOTECAN HCL [Concomitant]
     Route: 042
     Dates: start: 20071203
  3. LEUCOVORIN CALCIUM [Concomitant]
     Route: 042
     Dates: start: 20071203
  4. FLUOROURACIL [Concomitant]
     Route: 042
     Dates: start: 20071203
  5. AMOXICILLIN + CLAVULANATE POTASSIUM [Concomitant]
     Route: 048
     Dates: start: 20080117, end: 20080204
  6. LOPERAMIDE HCL [Concomitant]
     Route: 048
     Dates: start: 20080115, end: 20080124
  7. PREDNISOLONE [Concomitant]
     Route: 048
     Dates: start: 20080117, end: 20080203
  8. VORICONAZOLE [Concomitant]
     Dates: start: 20080128, end: 20080213
  9. ASPIRIN [Concomitant]
     Route: 048
     Dates: start: 20080117
  10. PRAVASTATIN [Concomitant]
     Route: 048
     Dates: start: 20080117, end: 20080213
  11. ISOSORBIDE DINITRATE [Concomitant]
     Route: 048
     Dates: start: 20080117
  12. OMEPRAZOLE [Concomitant]
     Route: 048
     Dates: start: 20080117
  13. CYCLIZINE [Concomitant]
     Route: 048
     Dates: start: 20080101
  14. SLOW-K [Concomitant]
     Route: 048
     Dates: start: 20080121, end: 20080203
  15. ENOXAPARIN SODIUM [Concomitant]
     Route: 058
     Dates: start: 20080121
  16. FLUCLOX [Concomitant]
     Route: 048
     Dates: start: 20080117, end: 20080123
  17. LOPERAMIDE HCL [Concomitant]
     Route: 048
     Dates: start: 20070101, end: 20080114

REACTIONS (2)
  - ASTHENIA [None]
  - DIARRHOEA [None]
